FAERS Safety Report 22850215 (Version 3)
Quarter: 2024Q3

REPORT INFORMATION
  Report Type: Report from Study
  Country: US (occurrence: US)
  Receive Date: 20230822
  Receipt Date: 20240822
  Transmission Date: 20241017
  Serious: No
  Sender: ROCHE
  Company Number: US-ROCHE-3408088

PATIENT
  Age: 59 Year
  Sex: Male
  Weight: 95.7 kg

DRUGS (15)
  1. OCREVUS [Suspect]
     Active Substance: OCRELIZUMAB
     Indication: Multiple sclerosis
     Dosage: (30 MG/ML) SUBSEQUENTLY 600 MG EVERY 6 MONTHS
     Route: 042
     Dates: start: 201706
  2. ACYCLOVIR [Concomitant]
     Active Substance: ACYCLOVIR
     Route: 048
  3. AMANTADINE HYDROCHLORIDE [Concomitant]
     Active Substance: AMANTADINE HYDROCHLORIDE
     Route: 048
  4. ARMODAFINIL [Concomitant]
     Active Substance: ARMODAFINIL
     Route: 048
  5. BACLOFEN [Concomitant]
     Active Substance: BACLOFEN
     Route: 048
  6. DONEPEZIL [Concomitant]
     Active Substance: DONEPEZIL\DONEPEZIL HYDROCHLORIDE
     Route: 048
  7. DULOXETINE [Concomitant]
     Active Substance: DULOXETINE
     Route: 048
  8. FLUOCINOLONE ACETONIDE [Concomitant]
     Active Substance: FLUOCINOLONE ACETONIDE
     Dosage: EAR DROPS
  9. FLUTICASONE PROPIONATE [Concomitant]
     Active Substance: FLUTICASONE PROPIONATE
     Dosage: ACTUATION NASAL SPRAY,SUSPENSION
  10. FUROSEMIDE [Concomitant]
     Active Substance: FUROSEMIDE
     Route: 048
  11. MEMANTINE [Concomitant]
     Active Substance: MEMANTINE
     Route: 048
  12. TIZANIDINE [Concomitant]
     Active Substance: TIZANIDINE
     Route: 048
  13. VITAMIN B COMPLEX [Concomitant]
     Active Substance: CYANOCOBALAMIN\DEXPANTHENOL\NIACINAMIDE\PYRIDOXINE HYDROCHLORIDE\RIBOFLAVIN 5^-PHOSPHATE SODIUM\THIA
  14. VITAMIN D3 [Concomitant]
     Active Substance: CHOLECALCIFEROL
     Dosage: 5000 UNIT
     Route: 048
  15. BENADRYL [Concomitant]
     Active Substance: DIPHENHYDRAMINE HYDROCHLORIDE

REACTIONS (10)
  - Malaise [Not Recovered/Not Resolved]
  - Muscular weakness [Not Recovered/Not Resolved]
  - Dysphonia [Unknown]
  - Oral herpes [Unknown]
  - Anxiety [Unknown]
  - Upper respiratory tract infection [Unknown]
  - Rhinitis [Unknown]
  - Headache [Unknown]
  - Polyuria [Unknown]
  - Off label use [Unknown]
